FAERS Safety Report 8895825 (Version 2)
Quarter: 2012Q4

REPORT INFORMATION
  Report Type: Report from Study
  Country: GB (occurrence: GB)
  Receive Date: 20121108
  Receipt Date: 20121115
  Transmission Date: 20130627
  Serious: Yes (Death)
  Sender: FDA-Public Use
  Company Number: GB-ROCHE-1092431

PATIENT
  Sex: Female
  Weight: 86 kg

DRUGS (2)
  1. RITUXIMAB [Suspect]
     Indication: RHEUMATOID ARTHRITIS
     Route: 065
     Dates: start: 20101217
  2. RITUXIMAB [Suspect]
     Route: 065
     Dates: start: 20101230

REACTIONS (3)
  - Coronary artery disease [Fatal]
  - Arteriosclerosis coronary artery [Fatal]
  - Coronary artery stenosis [Fatal]
